FAERS Safety Report 10399066 (Version 1)
Quarter: 2014Q3

REPORT INFORMATION
  Report Type: Spontaneous
  Country: US (occurrence: US)
  Receive Date: 20140821
  Receipt Date: 20140821
  Transmission Date: 20150326
  Serious: Yes (Life-Threatening, Hospitalization, Other)
  Sender: FDA-Public Use
  Company Number: US-ACTAVIS-2014-17801

PATIENT
  Age: 16 Year
  Sex: Female

DRUGS (4)
  1. HYDROCODONE-ACETAMINOPHEN (WATSON LABORATORIES) [Suspect]
     Active Substance: ACETAMINOPHEN\HYDROCODONE
     Indication: PRODUCT USED FOR UNKNOWN INDICATION
     Dosage: UNK
     Route: 048
  2. ESCITALOPRAM [Suspect]
     Active Substance: ESCITALOPRAM OXALATE
     Indication: DEPRESSION
     Dosage: 500 MG, SINGLE
     Route: 048
  3. ESCITALOPRAM [Suspect]
     Active Substance: ESCITALOPRAM OXALATE
     Indication: INTENTIONAL OVERDOSE
  4. TRAMADOL HYDROCHLORIDE AND ACETAMINOPHEN 37.5/325MG (WATSON) (TRAMADOL HYDROCHLORIDE ACETAMINOPHEN) [Suspect]
     Active Substance: ACETAMINOPHEN\TRAMADOL HYDROCHLORIDE
     Indication: INTENTIONAL OVERDOSE
     Dosage: UNK, 25 TABLETS
     Route: 048

REACTIONS (7)
  - Bundle branch block right [Recovered/Resolved]
  - Vomiting [Unknown]
  - Electrocardiogram QRS complex prolonged [Recovered/Resolved]
  - Intentional overdose [Recovered/Resolved]
  - Sinus bradycardia [Recovered/Resolved]
  - Lethargy [Unknown]
  - Electrocardiogram QT prolonged [Recovered/Resolved]
